FAERS Safety Report 11028084 (Version 2)
Quarter: 2015Q2

REPORT INFORMATION
  Report Type: Spontaneous
  Country: US (occurrence: US)
  Receive Date: 20150414
  Receipt Date: 20150525
  Transmission Date: 20150821
  Serious: No
  Sender: FDA-Public Use
  Company Number: US-JNJFOC-20140512198

PATIENT
  Sex: Female

DRUGS (4)
  1. ORTHO TRI CYCLEN LO [Suspect]
     Active Substance: ETHINYL ESTRADIOL\NORGESTIMATE
     Indication: OVARIAN CYST
     Route: 048
     Dates: start: 2014
  2. DEPAKOTE [Concomitant]
     Active Substance: DIVALPROEX SODIUM
     Indication: MIGRAINE
     Route: 048
     Dates: start: 2004
  3. ORTHO TRI CYCLEN LO [Suspect]
     Active Substance: ETHINYL ESTRADIOL\NORGESTIMATE
     Indication: POLYCYSTIC OVARIES
     Route: 048
     Dates: start: 2014
  4. TRILEPTAL [Concomitant]
     Active Substance: OXCARBAZEPINE
     Indication: MIGRAINE
     Dosage: 450MG/ 150MG/DAILY/ORAL??300MG/ 150MG/NIGHTLY/ORAL
     Route: 048
     Dates: start: 2004

REACTIONS (5)
  - Inappropriate schedule of drug administration [Recovered/Resolved]
  - Metrorrhagia [Not Recovered/Not Resolved]
  - Off label use [Not Recovered/Not Resolved]
  - Abnormal loss of weight [Unknown]
  - Weight increased [Unknown]

NARRATIVE: CASE EVENT DATE: 2014
